FAERS Safety Report 19357470 (Version 1)
Quarter: 2021Q2

REPORT INFORMATION
  Report Type: Other
  Country: ES (occurrence: ES)
  Receive Date: 20210601
  Receipt Date: 20210601
  Transmission Date: 20210717
  Serious: Yes (Hospitalization, Other)
  Sender: FDA-Public Use
  Company Number: ES-VKT PHARMA PRIVATE LIMITED-000017

PATIENT
  Age: 8 Year
  Sex: Male

DRUGS (5)
  1. ACETAMINOPHEN. [Concomitant]
     Active Substance: ACETAMINOPHEN
     Indication: VIRAL INFECTION
     Dosage: ACUTE EPILEPTIC SEIZURE SECONDARY TO A?FEBRILE VIRAL EPISODE
  2. LEVETIRACETAM. [Suspect]
     Active Substance: LEVETIRACETAM
     Indication: EPILEPSY
     Route: 048
  3. DIAZEPAM. [Concomitant]
     Active Substance: DIAZEPAM
     Indication: EPILEPSY
  4. ACETAMINOPHEN. [Concomitant]
     Active Substance: ACETAMINOPHEN
     Indication: EPILEPSY
  5. LEVETIRACETAM. [Suspect]
     Active Substance: LEVETIRACETAM
     Indication: VIRAL INFECTION
     Dosage: ACUTE EPILEPTIC SEIZURE SECONDARY TO A?FEBRILE VIRAL EPISODE
     Route: 048

REACTIONS (2)
  - Toxic epidermal necrolysis [Recovered/Resolved]
  - Acute kidney injury [Unknown]
